FAERS Safety Report 25322173 (Version 1)
Quarter: 2025Q2

REPORT INFORMATION
  Report Type: Spontaneous
  Country: CN (occurrence: CN)
  Receive Date: 20250516
  Receipt Date: 20250516
  Transmission Date: 20250717
  Serious: Yes (Other)
  Sender: GLAXOSMITHKLINE
  Company Number: CN-GSK-CN2025GSK059772

PATIENT

DRUGS (2)
  1. ZEJULA [Suspect]
     Active Substance: NIRAPARIB
     Indication: Ovarian cancer
     Dates: start: 20201221, end: 202502
  2. ZEJULA [Suspect]
     Active Substance: NIRAPARIB

REACTIONS (1)
  - Nephrolithiasis [Recovered/Resolved]
